FAERS Safety Report 18348667 (Version 2)
Quarter: 2020Q4

REPORT INFORMATION
  Report Type: Spontaneous
  Country: US (occurrence: US)
  Receive Date: 20201006
  Receipt Date: 20201203
  Transmission Date: 20210114
  Serious: Yes (Other)
  Sender: FDA-Public Use
  Company Number: US-MYLANLABS-2020M1083847

PATIENT
  Sex: Female
  Weight: 67 kg

DRUGS (1)
  1. METHIMAZOLE. [Suspect]
     Active Substance: METHIMAZOLE
     Indication: HYPERTHYROIDISM
     Dosage: 5 MILLIGRAM, BID
     Route: 048
     Dates: end: 20060301

REACTIONS (5)
  - Palpitations [Recovered/Resolved]
  - Tremor [Unknown]
  - Feeling abnormal [Recovered/Resolved]
  - Drug ineffective [Unknown]
  - Feeling jittery [Recovered/Resolved]
